FAERS Safety Report 13418624 (Version 1)
Quarter: 2017Q2

REPORT INFORMATION
  Report Type: Spontaneous
  Country: GB (occurrence: GB)
  Receive Date: 20170406
  Receipt Date: 20170406
  Transmission Date: 20170830
  Serious: Yes (Other)
  Sender: FDA-Public Use
  Company Number: GB-BAUSCH-BL-2017-008298

PATIENT
  Age: 57 Year
  Sex: Female
  Weight: 51.71 kg

DRUGS (3)
  1. PREDNISOLONE. [Suspect]
     Active Substance: PREDNISOLONE
     Indication: LICHEN PLANUS
     Route: 048
     Dates: start: 20170318
  2. AMITRIPTYLINE [Concomitant]
     Active Substance: AMITRIPTYLINE
     Indication: PRODUCT USED FOR UNKNOWN INDICATION
  3. RIZATRIPTAN. [Concomitant]
     Active Substance: RIZATRIPTAN
     Indication: PRODUCT USED FOR UNKNOWN INDICATION

REACTIONS (3)
  - Skin burning sensation [Unknown]
  - Dizziness [Unknown]
  - Rash pruritic [Unknown]

NARRATIVE: CASE EVENT DATE: 20170318
